FAERS Safety Report 4282119-1 (Version None)
Quarter: 2004Q1

REPORT INFORMATION
  Report Type: 
  Country: None (occurrence: None)
  Receive Date: 20040130
  Receipt Date: 20030822
  Transmission Date: 20041129
  Serious: No
  Sender: FDA-Public Use
  Company Number: US-BRISTOL-MYERS SQUIBB COMPANY-12366233

PATIENT
  Sex: Female

DRUGS (5)
  1. DESYREL [Suspect]
     Route: 048
  2. PREMARIN [Concomitant]
  3. PAXIL [Concomitant]
  4. ASPIRIN [Concomitant]
  5. CLARITIN [Concomitant]

REACTIONS (1)
  - DRUG SCREEN POSITIVE [None]
